FAERS Safety Report 7510308-9 (Version None)
Quarter: 2011Q2

REPORT INFORMATION
  Report Type: 
  Country: None (occurrence: None)
  Receive Date: 20110527
  Receipt Date: 20110517
  Transmission Date: 20111010
  Serious: Yes (Hospitalization)
  Sender: FDA-Public Use
  Company Number: FR-UCBSA-032965

PATIENT
  Sex: Female

DRUGS (5)
  1. KEPPRA [Suspect]
     Route: 048
     Dates: start: 20110101, end: 20110101
  2. KEPPRA [Suspect]
     Route: 048
     Dates: start: 20110101, end: 20110123
  3. KEPPRA [Suspect]
     Route: 048
     Dates: start: 20110101, end: 20110101
  4. KEPPRA [Suspect]
     Indication: EPILEPSY
     Route: 048
     Dates: start: 20110107, end: 20110101
  5. URBANYL [Concomitant]
     Indication: EPILEPSY
     Dates: start: 20110107, end: 20110114

REACTIONS (3)
  - DEPRESSED LEVEL OF CONSCIOUSNESS [None]
  - MUSCLE SPASTICITY [None]
  - CONFUSIONAL STATE [None]
